FAERS Safety Report 17289181 (Version 1)
Quarter: 2020Q1

REPORT INFORMATION
  Report Type: Spontaneous
  Country: RO (occurrence: RO)
  Receive Date: 20200120
  Receipt Date: 20200120
  Transmission Date: 20200409
  Serious: Yes (Other)
  Sender: FDA-Public Use
  Company Number: RO-AMGEN-ROUSP2018040138

PATIENT
  Age: 24 Year
  Sex: Male

DRUGS (1)
  1. BLINCYTO [Suspect]
     Active Substance: BLINATUMOMAB
     Indication: ACUTE LYMPHOCYTIC LEUKAEMIA
     Dosage: 38.5 MICROGRAM
     Route: 065
     Dates: start: 201712

REACTIONS (4)
  - Infection [Recovered/Resolved]
  - Neurological symptom [Recovered/Resolved]
  - Hyperglobulinaemia [Recovered/Resolved]
  - Pyrexia [Recovered/Resolved]
